FAERS Safety Report 21606699 (Version 1)
Quarter: 2022Q4

REPORT INFORMATION
  Report Type: Spontaneous
  Country: US (occurrence: US)
  Receive Date: 20221117
  Receipt Date: 20221117
  Transmission Date: 20230112
  Serious: No
  Sender: FDA-Public Use
  Company Number: US-CIPLA LTD.-2022US05798

PATIENT
  Sex: Female

DRUGS (8)
  1. DIFLUPREDNATE [Suspect]
     Active Substance: DIFLUPREDNATE
     Indication: Intraocular pressure increased
     Dosage: 5 PERCENT, BID
     Route: 065
     Dates: start: 20220630
  2. DIFLUPREDNATE [Suspect]
     Active Substance: DIFLUPREDNATE
     Indication: Eye pain
     Dosage: UNK, BID (IN BOTH THE EYES)
     Route: 047
     Dates: start: 202208
  3. DIFLUPREDNATE [Suspect]
     Active Substance: DIFLUPREDNATE
     Dosage: UNK, QID (IN BOTH THE EYES)
     Route: 047
     Dates: start: 202208
  4. PILO [PILOCARPINE HYDROCHLORIDE] [Concomitant]
     Indication: Intraocular pressure increased
     Dosage: UNK
     Route: 065
     Dates: start: 202209, end: 20220921
  5. ACETAZOLAMIDE [Concomitant]
     Active Substance: ACETAZOLAMIDE
     Indication: Product used for unknown indication
     Dosage: 1 DOSAGE FORM, BID
     Route: 065
     Dates: start: 202209
  6. BRIMONIDINE [Concomitant]
     Active Substance: BRIMONIDINE TARTRATE
     Indication: Intraocular pressure increased
     Dosage: UNK, BID (IN BOTH THE EYES)
     Route: 065
  7. DORZOLAMIDE [Concomitant]
     Active Substance: DORZOLAMIDE
     Indication: Intraocular pressure increased
     Dosage: UNK, BID (IN BOTH THE EYES)
     Route: 065
  8. PREDNISOLONE [Concomitant]
     Active Substance: PREDNISOLONE
     Indication: Intraocular pressure increased
     Dosage: UNK
     Route: 065
     Dates: end: 202209

REACTIONS (4)
  - Drug ineffective [Not Recovered/Not Resolved]
  - Recalled product administered [Unknown]
  - Headache [Not Recovered/Not Resolved]
  - Vision blurred [Not Recovered/Not Resolved]

NARRATIVE: CASE EVENT DATE: 20220101
